FAERS Safety Report 15571682 (Version 1)
Quarter: 2018Q4

REPORT INFORMATION
  Report Type: Report from Study
  Country: PL (occurrence: PL)
  Receive Date: 20181031
  Receipt Date: 20181031
  Transmission Date: 20190205
  Serious: Yes (Life-Threatening, Other)
  Sender: FDA-Public Use
  Company Number: PL-CHIESI USA, INC.-PL-2018CHI000318

PATIENT
  Age: 0 Day
  Sex: Male
  Weight: 1.01 kg

DRUGS (3)
  1. CAFFEINE CITRATE. [Concomitant]
     Active Substance: CAFFEINE CITRATE
     Indication: PRODUCT USED FOR UNKNOWN INDICATION
     Dosage: UNK
     Dates: start: 20180710, end: 20180825
  2. CUROSURF [Suspect]
     Active Substance: PORACTANT ALFA
     Dosage: 1.5 ML, (1X)
     Route: 039
     Dates: start: 20180707, end: 20180707
  3. CUROSURF [Suspect]
     Active Substance: PORACTANT ALFA
     Indication: NEONATAL RESPIRATORY DISTRESS SYNDROME
     Dosage: 1.5 ML, (1X)
     Route: 039
     Dates: start: 20180707, end: 20180707

REACTIONS (4)
  - Neonatal hypoxia [Recovered/Resolved]
  - Inappropriate schedule of product administration [Recovered/Resolved]
  - Endotracheal intubation [Recovered/Resolved]
  - Product administration error [Recovered/Resolved]

NARRATIVE: CASE EVENT DATE: 20180707
